FAERS Safety Report 7118323-4 (Version None)
Quarter: 2010Q4

REPORT INFORMATION
  Report Type: 
  Country: None (occurrence: None)
  Receive Date: 20101123
  Receipt Date: 20101109
  Transmission Date: 20110411
  Serious: Yes (Other)
  Sender: FDA-Public Use
  Company Number: PHHY2010BR76482

PATIENT
  Age: 48 Year
  Sex: Female

DRUGS (2)
  1. CATAFLAM [Suspect]
     Indication: INFLAMMATION
     Route: 048
  2. ANTIBIOTICS [Suspect]

REACTIONS (5)
  - ERYTHEMA [None]
  - HYPERSENSITIVITY [None]
  - MASS [None]
  - SURGERY [None]
  - SWELLING FACE [None]
